FAERS Safety Report 12767310 (Version 1)
Quarter: 2016Q3

REPORT INFORMATION
  Report Type: Spontaneous
  Country: US (occurrence: US)
  Receive Date: 20160921
  Receipt Date: 20160921
  Transmission Date: 20161109
  Serious: No
  Sender: FDA-Public Use
  Company Number: US-GLAXOSMITHKLINE-US2016135788

PATIENT
  Age: 57 Year
  Sex: Male

DRUGS (1)
  1. EXCEDRIN MIGRAINE [Suspect]
     Active Substance: ACETAMINOPHEN\ASPIRIN\CAFFEINE
     Indication: MYALGIA
     Dosage: 3 DF, UNK, 3 PILLS AT A TIME
     Route: 048

REACTIONS (4)
  - Feeling abnormal [Unknown]
  - Accidental exposure to product packaging [Unknown]
  - Intentional product misuse [Unknown]
  - Extra dose administered [Unknown]
